FAERS Safety Report 9551057 (Version 2)
Quarter: 2013Q3

REPORT INFORMATION
  Report Type: Spontaneous
  Country: JP (occurrence: JP)
  Receive Date: 20130925
  Receipt Date: 20130925
  Transmission Date: 20140515
  Serious: Yes (Hospitalization, Other)
  Sender: FDA-Public Use
  Company Number: JP-PFIZER INC-2013198346

PATIENT
  Age: 84 Year
  Sex: Male

DRUGS (12)
  1. TOVIAZ [Suspect]
     Indication: HYPERTONIC BLADDER
     Dosage: 4 MG, 1X/DAY
     Route: 048
     Dates: start: 20130626, end: 20130701
  2. AVOLVE [Concomitant]
     Indication: BENIGN PROSTATIC HYPERPLASIA
     Dosage: 0.5 MG, 1X/DAY
     Route: 048
     Dates: start: 20130627
  3. FLIVAS [Concomitant]
     Indication: DYSURIA
     Dosage: 75 MG, 1X/DAY
     Route: 048
     Dates: start: 20130612
  4. CONIEL [Concomitant]
     Dosage: UNK
     Route: 048
  5. SALOBEL [Concomitant]
     Dosage: UNK
     Route: 048
  6. URSO [Concomitant]
     Dosage: UNK
     Route: 048
  7. MUCODYNE [Concomitant]
     Dosage: UNK
     Route: 048
  8. SINGULAIR [Concomitant]
     Dosage: UNK
     Route: 048
  9. MYSLEE [Concomitant]
     Dosage: UNK
     Route: 048
  10. SHAKUYAKU-KANZO-TO [Concomitant]
     Dosage: UNK
     Route: 048
  11. HOKUNALIN TAPE [Concomitant]
     Dosage: UNK
  12. SPIRIVA [Concomitant]
     Dosage: UNK

REACTIONS (2)
  - Urinary retention [Recovered/Resolved]
  - Ankle fracture [Recovered/Resolved]
